FAERS Safety Report 7589782-8 (Version None)
Quarter: 2011Q3

REPORT INFORMATION
  Report Type: 
  Country: None (occurrence: None)
  Receive Date: 20110705
  Receipt Date: 20110624
  Transmission Date: 20111222
  Serious: Yes (Other)
  Sender: FDA-Public Use
  Company Number: B0730587A

PATIENT
  Age: 50 Year
  Sex: Female
  Weight: 81 kg

DRUGS (1)
  1. ALLI [Suspect]
     Dosage: 60MG TWICE PER DAY
     Route: 048
     Dates: start: 20110622, end: 20110622

REACTIONS (4)
  - NERVOUSNESS [None]
  - SOMNAMBULISM [None]
  - CONVULSION [None]
  - HEART RATE INCREASED [None]
